FAERS Safety Report 11745434 (Version 1)
Quarter: 2015Q4

REPORT INFORMATION
  Report Type: Spontaneous
  Country: US (occurrence: None)
  Receive Date: 20151116
  Receipt Date: 20151116
  Transmission Date: 20160304
  Serious: No
  Sender: FDA-Public Use
  Company Number: None

PATIENT
  Age: 43 Year
  Sex: Female
  Weight: 108.86 kg

DRUGS (7)
  1. VALIUM [Concomitant]
     Active Substance: DIAZEPAM
  2. INHALER [Concomitant]
     Active Substance: UNSPECIFIED INGREDIENT
  3. PROAIR HFA [Concomitant]
     Active Substance: ALBUTEROL SULFATE
  4. EFFEXOR XR [Suspect]
     Active Substance: VENLAFAXINE HYDROCHLORIDE
     Indication: ANXIETY
     Dosage: TAKEN BY MOUTH
     Dates: start: 20150430, end: 20151114
  5. MORPHINE [Concomitant]
     Active Substance: MORPHINE
  6. EFFEXOR XR [Suspect]
     Active Substance: VENLAFAXINE HYDROCHLORIDE
     Indication: DEPRESSION
     Dosage: TAKEN BY MOUTH
     Dates: start: 20150430, end: 20151114
  7. MICROZIDE [Concomitant]
     Active Substance: HYDROCHLOROTHIAZIDE

REACTIONS (11)
  - Paraesthesia [None]
  - Pain [None]
  - Dizziness [None]
  - Insomnia [None]
  - Nausea [None]
  - Irritability [None]
  - Drug withdrawal syndrome [None]
  - Chills [None]
  - Agitation [None]
  - Feeling abnormal [None]
  - Sensory disturbance [None]
